FAERS Safety Report 4382810-2 (Version None)
Quarter: 2004Q2

REPORT INFORMATION
  Report Type: 
  Country: None (occurrence: None)
  Receive Date: 20040617
  Receipt Date: 20040610
  Transmission Date: 20050107
  Serious: No
  Sender: FDA-Public Use
  Company Number: TPA2004A00719

PATIENT
  Age: 49 Year
  Sex: Male
  Weight: 99.7913 kg

DRUGS (2)
  1. ACTOS [Suspect]
     Indication: DIABETES MELLITUS NON-INSULIN-DEPENDENT
     Dosage: 15 MG, QAM, PER ORAL
     Route: 048
     Dates: start: 20040609
  2. GLYBURIDE [Concomitant]

REACTIONS (1)
  - MEDICATION ERROR [None]
